FAERS Safety Report 8228857-7 (Version None)
Quarter: 2012Q1

REPORT INFORMATION
  Report Type: 
  Country: None (occurrence: None)
  Receive Date: 20120322
  Receipt Date: 20110805
  Transmission Date: 20120608
  Serious: No
  Sender: FDA-Public Use
  Company Number: US-MYLANLABS-2011S1013647

PATIENT
  Age: 45 Year
  Sex: Female
  Weight: 81.65 kg

DRUGS (1)
  1. TAMOXIFEN CITRATE [Suspect]
     Indication: BREAST CANCER
     Route: 048
     Dates: start: 20110515, end: 20110629

REACTIONS (3)
  - RASH GENERALISED [None]
  - HYPERSENSITIVITY [None]
  - URTICARIA [None]
